FAERS Safety Report 25373827 (Version 1)
Quarter: 2025Q2

REPORT INFORMATION
  Report Type: Spontaneous
  Country: US (occurrence: US)
  Receive Date: 20250529
  Receipt Date: 20250529
  Transmission Date: 20250717
  Serious: No
  Sender: CIPLA
  Company Number: US-CIPLA LTD.-2024US13425

PATIENT

DRUGS (1)
  1. ALBUTEROL [Suspect]
     Active Substance: ALBUTEROL
     Indication: Cough
     Dosage: 180 MCG, QID (2 PUFFS BY MOUTH EVERY 6 HOURS)
     Dates: start: 20241026

REACTIONS (4)
  - Drug dose omission by device [Unknown]
  - Off label use [Unknown]
  - Device delivery system issue [Unknown]
  - Device mechanical issue [Unknown]

NARRATIVE: CASE EVENT DATE: 20241001
